FAERS Safety Report 18634233 (Version 1)
Quarter: 2020Q4

REPORT INFORMATION
  Report Type: Spontaneous
  Country: FR (occurrence: FR)
  Receive Date: 20201218
  Receipt Date: 20201218
  Transmission Date: 20210114
  Serious: Yes (Hospitalization, Other)
  Sender: FDA-Public Use
  Company Number: FR-009507513-2012FRA006107

PATIENT
  Age: 51 Year
  Sex: Male

DRUGS (3)
  1. INCIVO [Concomitant]
     Active Substance: TELAPREVIR
     Dosage: UNK
     Dates: start: 20110324, end: 20110615
  2. PEGASYS [Concomitant]
     Active Substance: PEGINTERFERON ALFA-2A
     Dosage: UNK
     Dates: start: 20110324, end: 20120316
  3. RIBAVIRIN. [Suspect]
     Active Substance: RIBAVIRIN
     Indication: HEPATITIS C
     Dosage: UNK
     Route: 048
     Dates: start: 20110324, end: 20120314

REACTIONS (1)
  - Jaundice [Recovering/Resolving]

NARRATIVE: CASE EVENT DATE: 20190725
